FAERS Safety Report 9697907 (Version 3)
Quarter: 2014Q3

REPORT INFORMATION
  Report Type: Report from Study
  Country: US (occurrence: US)
  Receive Date: 20131120
  Receipt Date: 20140926
  Transmission Date: 20150326
  Serious: Yes (Hospitalization)
  Sender: FDA-Public Use
  Company Number: US-ALEXION-A201302841

PATIENT

DRUGS (2)
  1. SOLIRIS [Suspect]
     Active Substance: ECULIZUMAB
     Indication: PAROXYSMAL NOCTURNAL HAEMOGLOBINURIA
     Dosage: UNK
     Route: 042
  2. DEFEROXAMINE [Concomitant]
     Active Substance: DEFEROXAMINE\DEFEROXAMINE MESYLATE
     Indication: IRON OVERLOAD
     Dosage: UKN
     Route: 048

REACTIONS (11)
  - Myelodysplastic syndrome [Unknown]
  - Paroxysmal nocturnal haemoglobinuria [Not Recovered/Not Resolved]
  - Thrombocytopenia [Unknown]
  - Dyspnoea [Unknown]
  - Blood lactate dehydrogenase increased [Recovering/Resolving]
  - Weight decreased [Unknown]
  - Gastrostomy [Unknown]
  - Nausea [Unknown]
  - Iron overload [Unknown]
  - Vomiting [Unknown]
  - Anaemia [Unknown]
